FAERS Safety Report 7317886 (Version 3)
Quarter: 2013Q4

REPORT INFORMATION
  Report Type: Spontaneous
  Country: US (occurrence: US)
  Receive Date: 20100312
  Receipt Date: 20131223
  Transmission Date: 20140711
  Serious: Yes (Hospitalization, Other)
  Sender: FDA-Public Use
  Company Number: US-BAYER-201015601NA

PATIENT
  Age: 35 Year
  Sex: Female
  Weight: 78.91 kg

DRUGS (30)
  1. YASMIN [Suspect]
     Indication: PREMENSTRUAL SYNDROME
     Dosage: 1 DF, QD
     Dates: start: 2004, end: 200908
  2. YASMIN [Suspect]
     Indication: PREMENSTRUAL DYSPHORIC DISORDER
  3. YAZ [Suspect]
     Indication: PREMENSTRUAL DYSPHORIC DISORDER
     Dosage: UNK
     Dates: start: 2004, end: 200908
  4. YAZ [Suspect]
     Indication: PREMENSTRUAL SYNDROME
  5. METFORMIN [Concomitant]
     Indication: DIABETES MELLITUS
     Dosage: 500 MG
     Route: 048
  6. PRISTIQ [Concomitant]
     Indication: DEPRESSION
     Dosage: 50 MG, QD
  7. HEPARIN [Concomitant]
     Dosage: IV DRIP
     Route: 042
     Dates: start: 20081221
  8. HYDROCODONE [Concomitant]
  9. BENTYL [Concomitant]
  10. ZESTRIL [Concomitant]
     Dosage: 2.5 MG, UNK
     Route: 048
     Dates: start: 20081221
  11. ZOCOR [Concomitant]
     Dosage: 40 GM
     Route: 048
     Dates: start: 20081221
  12. ATIVAN [Concomitant]
     Dosage: 1 MG, UNK
     Route: 042
     Dates: start: 20081221
  13. NITRO PASTE [Concomitant]
     Dosage: UNK
     Dates: start: 20081221, end: 20081221
  14. PLAVIX [Concomitant]
     Dosage: 600 MG, UNK
     Route: 048
     Dates: start: 20081221
  15. MYLANTA AR [Concomitant]
     Dosage: 30 CC
     Route: 048
     Dates: start: 20081221
  16. LISINOPRIL [Concomitant]
     Dosage: 2.5 MG, UNK
     Dates: start: 20081221
  17. PRAVASTATIN [Concomitant]
     Dosage: 20 MG, UNK
     Route: 048
     Dates: start: 20081221
  18. INTEGRILIN [Concomitant]
     Dosage: 2 MCG/ KG/ MIN
     Route: 042
     Dates: start: 20081221
  19. ZOFRAN [Concomitant]
     Dosage: 4 MG, UNK
     Route: 042
     Dates: start: 20081221
  20. LORTAB [Concomitant]
     Dosage: 5/50
     Route: 048
     Dates: start: 20081221
  21. FENTANYL [Concomitant]
     Dosage: 100 ?G
     Route: 042
     Dates: start: 20081221
  22. XANAX [Concomitant]
     Dosage: 0.25 MG
     Route: 048
     Dates: start: 20081221
  23. COLACE [Concomitant]
     Dosage: 100 MG
     Route: 048
     Dates: start: 20081221
  24. SENOKOT [Concomitant]
     Dosage: UNK
     Route: 048
     Dates: start: 20081221
  25. VERSED [Concomitant]
     Dosage: 1 MG
     Route: 042
     Dates: start: 20081221
  26. NEXIUM [Concomitant]
     Dosage: 40 MG
     Route: 048
     Dates: start: 20081221
  27. VITAMIN D [Concomitant]
     Indication: VITAMIN SUPPLEMENTATION
     Dosage: 1 DF, QD
  28. ALBUTEROL [Concomitant]
     Dosage: UNK
     Dates: start: 200604
  29. LEXAPRO [Concomitant]
     Dosage: 200 MG, QD
     Route: 048
  30. DILAUDID [Concomitant]

REACTIONS (16)
  - Cholecystitis acute [None]
  - Cardiac valve disease [None]
  - Anxiety [Not Recovered/Not Resolved]
  - Gallbladder disorder [None]
  - Coronary artery stenosis [None]
  - Cardiac disorder [None]
  - Cardiac failure congestive [None]
  - Abdominal pain [None]
  - Gastrointestinal disorder [None]
  - Sinus tachycardia [Not Recovered/Not Resolved]
  - Arrhythmia [None]
  - Chest pain [None]
  - Panic attack [Not Recovered/Not Resolved]
  - Depressed mood [Not Recovered/Not Resolved]
  - Mental disorder [None]
  - Angina unstable [None]
